FAERS Safety Report 13931995 (Version 2)
Quarter: 2017Q4

REPORT INFORMATION
  Report Type: Spontaneous
  Country: US (occurrence: US)
  Receive Date: 20170904
  Receipt Date: 20171106
  Transmission Date: 20180320
  Serious: No
  Sender: FDA-Public Use
  Company Number: US-AUROBINDO-AUR-APL-2017-39459

PATIENT
  Age: 18 Year
  Sex: Female

DRUGS (1)
  1. FLUOXETINE [Suspect]
     Active Substance: FLUOXETINE HYDROCHLORIDE
     Indication: DEPRESSION
     Dosage: 40 MG, UNK
     Route: 065

REACTIONS (7)
  - Drug interaction [Unknown]
  - Insomnia [Unknown]
  - Agitation [Unknown]
  - Feeling jittery [Unknown]
  - Tachyphrenia [Unknown]
  - Food interaction [Unknown]
  - Nervousness [Unknown]
